FAERS Safety Report 5750973-X (Version None)
Quarter: 2008Q2

REPORT INFORMATION
  Report Type: 
  Country: None (occurrence: None)
  Receive Date: 20080528
  Receipt Date: 20080521
  Transmission Date: 20081010
  Serious: Yes (Other)
  Sender: FDA-Public Use
  Company Number: US-ASTRAZENECA-2008AC01311

PATIENT
  Age: 38 Year
  Sex: Female

DRUGS (11)
  1. PROPOFOL [Suspect]
     Indication: ANAESTHESIA
     Route: 042
  2. FENTANYL-100 [Suspect]
     Indication: ANAESTHESIA
  3. FENTANYL-100 [Suspect]
     Dosage: ANESTHESIA MAINTAINED WITH INTERMITTENT DOSES OF FENTANYL
  4. ISOFLURANE [Suspect]
     Indication: ANAESTHESIA
     Dosage: ISOFLURANE IN 33% OXYGEN AND 66% NITROUS OXIDE
  5. SUCCINYLCHOLINE CHLORIDE [Suspect]
     Indication: ANAESTHESIA
  6. MIDAZOLAM HCL [Concomitant]
     Indication: PREMEDICATION
  7. BICITRA [Concomitant]
     Indication: PREMEDICATION
  8. RANITIDINE [Concomitant]
     Indication: PREMEDICATION
  9. CEFAZOLIN [Concomitant]
  10. DOLASETRON [Concomitant]
  11. COMPAZINE [Concomitant]

REACTIONS (1)
  - DEAFNESS NEUROSENSORY [None]
